FAERS Safety Report 5460970-X (Version None)
Quarter: 2007Q3

REPORT INFORMATION
  Report Type: 
  Country: None (occurrence: None)
  Receive Date: 20070822
  Receipt Date: 20060724
  Transmission Date: 20080115
  Serious: Yes (Life-Threatening, Other)
  Sender: FDA-Public Use
  Company Number: 2006091173

PATIENT
  Sex: Male

DRUGS (1)
  1. NORVASC [Suspect]
     Indication: DRUG USE FOR UNKNOWN INDICATION
     Dosage: (5 MG); LAST 4 DAYS

REACTIONS (3)
  - DYSPNOEA [None]
  - EPISTAXIS [None]
  - MALAISE [None]
